FAERS Safety Report 25186275 (Version 1)
Quarter: 2025Q2

REPORT INFORMATION
  Report Type: Spontaneous
  Country: PL (occurrence: PL)
  Receive Date: 20250410
  Receipt Date: 20250410
  Transmission Date: 20250716
  Serious: Yes (Other)
  Sender: JOHNSON AND JOHNSON
  Company Number: PL-GRUNENTHAL-2025-105153

PATIENT
  Age: 37 Year
  Sex: Male

DRUGS (27)
  1. TAPENTADOL [Suspect]
     Active Substance: TAPENTADOL
     Indication: Product used for unknown indication
     Route: 065
  2. RISPERIDONE [Suspect]
     Active Substance: RISPERIDONE
     Indication: Product used for unknown indication
     Route: 065
  3. RISPERIDONE [Suspect]
     Active Substance: RISPERIDONE
     Route: 065
  4. RISPERIDONE [Suspect]
     Active Substance: RISPERIDONE
  5. RISPERIDONE [Suspect]
     Active Substance: RISPERIDONE
  6. RISPERIDONE [Suspect]
     Active Substance: RISPERIDONE
  7. RISPERIDONE [Suspect]
     Active Substance: RISPERIDONE
  8. ESCITALOPRAM [Suspect]
     Active Substance: ESCITALOPRAM OXALATE
     Indication: Product used for unknown indication
  9. PROTHIPENDYL [Suspect]
     Active Substance: PROTHIPENDYL
     Indication: Product used for unknown indication
  10. PROTHIPENDYL [Suspect]
     Active Substance: PROTHIPENDYL
  11. LITHIUM [Suspect]
     Active Substance: LITHIUM
     Indication: Product used for unknown indication
  12. HALOPERIDOL [Concomitant]
     Active Substance: HALOPERIDOL
     Indication: Psychiatric symptom
  13. DIAZEPAM [Concomitant]
     Active Substance: DIAZEPAM
     Indication: Psychiatric symptom
  14. PERAZINE [Concomitant]
     Active Substance: PERAZINE
     Indication: Psychiatric symptom
  15. PERAZINE [Concomitant]
     Active Substance: PERAZINE
  16. VALPROIC ACID [Concomitant]
     Active Substance: VALPROIC ACID
     Indication: Psychiatric symptom
  17. VALPROIC ACID [Concomitant]
     Active Substance: VALPROIC ACID
  18. METAMIZOLE [Concomitant]
     Active Substance: METAMIZOLE
     Indication: Analgesic therapy
  19. TILIDINE [Concomitant]
     Active Substance: TILIDINE
     Indication: Analgesic therapy
  20. NALOXONE [Concomitant]
     Active Substance: NALOXONE
     Indication: Analgesic therapy
  21. DICLOFENAC [Concomitant]
     Active Substance: DICLOFENAC
     Indication: Analgesic therapy
  22. HYDROMORPHONE [Concomitant]
     Active Substance: HYDROMORPHONE
     Indication: Analgesic therapy
  23. NATRIUM [DICLOFENAC SODIUM] [Concomitant]
     Indication: Analgesic therapy
  24. IBUPROFEN [Concomitant]
     Active Substance: IBUPROFEN
     Indication: Analgesic therapy
  25. ENOXAPARIN SODIUM [Concomitant]
     Active Substance: ENOXAPARIN SODIUM
     Indication: Immobile
  26. PANTOPRAZOLE [Concomitant]
     Active Substance: PANTOPRAZOLE
     Indication: Product used for unknown indication
  27. SOLIFENACIN SUCCINATE [Concomitant]
     Active Substance: SOLIFENACIN SUCCINATE
     Indication: Urinary incontinence

REACTIONS (1)
  - Suicidal ideation [Not Recovered/Not Resolved]
